FAERS Safety Report 7744763-6 (Version None)
Quarter: 2011Q3

REPORT INFORMATION
  Report Type: 
  Country: None (occurrence: None)
  Receive Date: 20110912
  Receipt Date: 20110912
  Transmission Date: 20111222
  Serious: Yes (Life-Threatening, Hospitalization, Other)
  Sender: FDA-Public Use
  Company Number: None

PATIENT
  Age: 70 Year
  Sex: Male
  Weight: 68.9 kg

DRUGS (1)
  1. DABIGATRAN [Suspect]
     Indication: ATRIAL FIBRILLATION
     Dosage: 1 CAPSULE
     Route: 048

REACTIONS (5)
  - SYNCOPE [None]
  - HAEMOGLOBIN DECREASED [None]
  - MELAENA [None]
  - HYPOVOLAEMIC SHOCK [None]
  - GASTROINTESTINAL HAEMORRHAGE [None]
